FAERS Safety Report 24367836 (Version 1)
Quarter: 2024Q3

REPORT INFORMATION
  Report Type: Spontaneous
  Country: US (occurrence: US)
  Receive Date: 20240926
  Receipt Date: 20240926
  Transmission Date: 20241017
  Serious: No
  Sender: NOVARTIS
  Company Number: US-002147023-NVSC2024US191500

PATIENT
  Age: 69 Year

DRUGS (1)
  1. LEQVIO [Suspect]
     Active Substance: INCLISIRAN SODIUM
     Indication: Product used for unknown indication
     Dosage: 284 MG/KG (1 DOSE, 3 MONTHS AND THEN 6 MONTHS)
     Route: 065
     Dates: start: 20240909, end: 20240917

REACTIONS (5)
  - Oropharyngeal pain [Recovering/Resolving]
  - Oral mucosal eruption [Recovering/Resolving]
  - Ear pain [Recovering/Resolving]
  - Head discomfort [Recovering/Resolving]
  - Pain [Recovering/Resolving]

NARRATIVE: CASE EVENT DATE: 20240909
